FAERS Safety Report 6317184-0 (Version None)
Quarter: 2009Q3

REPORT INFORMATION
  Report Type: 
  Country: None (occurrence: None)
  Receive Date: 20090819
  Receipt Date: 20090805
  Transmission Date: 20100115
  Serious: Yes (Hospitalization)
  Sender: FDA-Public Use
  Company Number: 2009AL005123

PATIENT
  Sex: Male
  Weight: 3.1752 kg

DRUGS (20)
  1. DIGOXIN [Suspect]
     Indication: CARDIAC DISORDER
     Dosage: 0.25CC, BID, PO 0.125MG, BID, PO
     Route: 048
  2. LASIX [Concomitant]
  3. MOTRIN [Concomitant]
  4. MILRINONE [Concomitant]
  5. EPINEPHRINE [Concomitant]
  6. NIPRIDE [Concomitant]
  7. DOBUTAMINE HCL [Concomitant]
  8. FUROSEMIDE [Concomitant]
  9. CAPTOPRIL [Concomitant]
  10. AMOXICILLIN [Concomitant]
  11. PENICILLIN VK [Concomitant]
  12. SPIRONOLACTONE [Concomitant]
  13. PREDNISOLONE [Concomitant]
  14. TRIMOX [Concomitant]
  15. AUGMENTIN '875' [Concomitant]
  16. .......... [Concomitant]
  17. MEBENDAZOLE [Concomitant]
  18. AMOXIL [Concomitant]
  19. ZITHROMAX [Concomitant]
  20. AUGMENTIN [Concomitant]

REACTIONS (17)
  - ATELECTASIS [None]
  - BLINDNESS CORTICAL [None]
  - CARDIO-RESPIRATORY ARREST [None]
  - CARDIOMEGALY [None]
  - CELLULITIS [None]
  - COARCTATION OF THE AORTA [None]
  - CONFUSIONAL STATE [None]
  - DISORIENTATION [None]
  - GRUNTING [None]
  - HEART DISEASE CONGENITAL [None]
  - HYPERSOMNIA [None]
  - HYPERTROPHIC CARDIOMYOPATHY [None]
  - HYPOPHAGIA [None]
  - RESPIRATORY SYNCYTIAL VIRUS INFECTION [None]
  - TACHYPNOEA [None]
  - VENTRICULAR SEPTAL DEFECT [None]
  - VOCAL CORD PARALYSIS [None]
